FAERS Safety Report 18683093 (Version 1)
Quarter: 2020Q4

REPORT INFORMATION
  Report Type: Spontaneous
  Country: JP (occurrence: JP)
  Receive Date: 20201230
  Receipt Date: 20201230
  Transmission Date: 20210114
  Serious: Yes (Death, Hospitalization, Other)
  Sender: FDA-Public Use
  Company Number: JP-009507513-2012JPN011815

PATIENT
  Age: 69 Year
  Sex: Male

DRUGS (7)
  1. OPDIVO [Suspect]
     Active Substance: NIVOLUMAB
     Indication: GASTRIC CANCER
     Dosage: 219.6 MG
     Route: 041
     Dates: start: 20171017, end: 20171128
  2. OPDIVO [Suspect]
     Active Substance: NIVOLUMAB
     Dosage: 192.6 MG
     Route: 041
     Dates: start: 20171212, end: 20180403
  3. LOXOPROFEN SODIUM [Concomitant]
     Active Substance: LOXOPROFEN SODIUM
     Dosage: UNK
     Route: 065
  4. AMLODIPINE [Concomitant]
     Active Substance: AMLODIPINE BESYLATE
     Dosage: UNK
     Route: 065
  5. GLACTIV [Suspect]
     Active Substance: SITAGLIPTIN
     Indication: TYPE 2 DIABETES MELLITUS
     Dosage: UNK
     Route: 048
  6. LANSOPRAZOLE. [Concomitant]
     Active Substance: LANSOPRAZOLE
     Dosage: UNK
     Route: 065
  7. FUROSEMIDE. [Concomitant]
     Active Substance: FUROSEMIDE
     Dosage: UNK
     Route: 065

REACTIONS (9)
  - Adrenal insufficiency [Recovering/Resolving]
  - Drug eruption [Recovering/Resolving]
  - Abdominal distension [Unknown]
  - Thyroid disorder [Not Recovered/Not Resolved]
  - Malignant neoplasm progression [Fatal]
  - Weight decreased [Unknown]
  - Cholecystitis [Recovering/Resolving]
  - Septic shock [Recovering/Resolving]
  - Stomatitis [Unknown]

NARRATIVE: CASE EVENT DATE: 20171114
